FAERS Safety Report 10451216 (Version 1)
Quarter: 2014Q3

REPORT INFORMATION
  Report Type: Spontaneous
  Country: US (occurrence: US)
  Receive Date: 20140912
  Receipt Date: 20140912
  Transmission Date: 20150326
  Serious: No
  Sender: FDA-Public Use
  Company Number: US-GALDERMA-US14001977

PATIENT
  Age: 35 Year
  Sex: Female

DRUGS (6)
  1. AVEENO MOISTURIZER WITH SPF 15 [Concomitant]
     Indication: DRY SKIN PROPHYLAXIS
     Route: 061
     Dates: start: 201306
  2. MIRVASO [Suspect]
     Active Substance: BRIMONIDINE TARTRATE
     Indication: ROSACEA
     Dosage: 0.33%
     Route: 061
     Dates: start: 20140502, end: 20140506
  3. SODIUM SULFACETAMIDE CLEANSER [Concomitant]
     Indication: ROSACEA
     Dosage: 10/5%
     Route: 061
     Dates: start: 20140502
  4. DOXYCYCLINE HYCLATE. [Concomitant]
     Active Substance: DOXYCYCLINE HYCLATE
     Indication: ROSACEA
     Dosage: 100 MG
     Route: 048
     Dates: start: 20140502
  5. METRONIDAZOLE CREAM (METRONIDAZOLE) 0.75% [Concomitant]
     Active Substance: METRONIDAZOLE
     Indication: ROSACEA
     Dosage: 0.75%
     Route: 061
     Dates: start: 20140501
  6. DERMABLEND MAKEUP [Concomitant]
     Route: 061
     Dates: start: 201403

REACTIONS (6)
  - Feeling hot [Recovered/Resolved]
  - Erythema [Recovered/Resolved]
  - Condition aggravated [Recovered/Resolved]
  - Pallor [Recovered/Resolved]
  - Flushing [Recovered/Resolved]
  - Rash macular [Recovered/Resolved]

NARRATIVE: CASE EVENT DATE: 20140502
